FAERS Safety Report 13687631 (Version 3)
Quarter: 2017Q4

REPORT INFORMATION
  Report Type: Spontaneous
  Country: CA (occurrence: CA)
  Receive Date: 20170625
  Receipt Date: 20171212
  Transmission Date: 20180320
  Serious: Yes (Other)
  Sender: FDA-Public Use
  Company Number: CA-CONCORDIA PHARMACEUTICALS INC.-GSH201706-003765

PATIENT
  Age: 64 Year
  Sex: Female

DRUGS (10)
  1. PREDNISONE. [Suspect]
     Active Substance: PREDNISONE
     Indication: RHEUMATOID ARTHRITIS
     Route: 065
  2. FOLATE [Concomitant]
     Active Substance: FOLATE SODIUM
  3. PREVACID [Concomitant]
     Active Substance: LANSOPRAZOLE
  4. ARAVA [Suspect]
     Active Substance: LEFLUNOMIDE
     Indication: RHEUMATOID ARTHRITIS
     Route: 048
     Dates: start: 2006
  5. ORENCIA [Suspect]
     Active Substance: ABATACEPT
     Indication: RHEUMATOID ARTHRITIS
     Route: 065
     Dates: start: 201408, end: 201501
  6. ACTONEL [Concomitant]
     Active Substance: RISEDRONATE SODIUM
  7. METHOTREXATE. [Suspect]
     Active Substance: METHOTREXATE
     Indication: RHEUMATOID ARTHRITIS
     Route: 065
  8. PLAQUENIL [Suspect]
     Active Substance: HYDROXYCHLOROQUINE SULFATE
     Indication: RHEUMATOID ARTHRITIS
     Route: 048
     Dates: start: 2004
  9. ENBREL [Suspect]
     Active Substance: ETANERCEPT
     Indication: PRODUCT USED FOR UNKNOWN INDICATION
     Route: 058
     Dates: start: 201005, end: 201205
  10. CIMZIA [Suspect]
     Active Substance: CERTOLIZUMAB PEGOL
     Indication: RHEUMATOID ARTHRITIS
     Route: 065
     Dates: start: 201402

REACTIONS (11)
  - Fatigue [Recovered/Resolved]
  - Drug intolerance [Unknown]
  - Musculoskeletal stiffness [Unknown]
  - Fine motor skill dysfunction [Unknown]
  - Rheumatoid arthritis [Unknown]
  - Swelling [Unknown]
  - Malaise [Recovered/Resolved]
  - Drug ineffective [Unknown]
  - Pain [Unknown]
  - Ear infection [Recovered/Resolved]
  - Drug effect decreased [Unknown]
